FAERS Safety Report 8289230-9 (Version None)
Quarter: 2012Q2

REPORT INFORMATION
  Report Type: 
  Country: None (occurrence: None)
  Receive Date: 20120417
  Receipt Date: 20120410
  Transmission Date: 20120825
  Serious: Yes (Hospitalization)
  Sender: FDA-Public Use
  Company Number: PHHY2012AT029658

PATIENT
  Age: 24 Year
  Sex: Male
  Weight: 78 kg

DRUGS (3)
  1. PREDNISOLONE [Concomitant]
     Dosage: 5 MG, QD
     Dates: start: 20101001
  2. MYFORTIC [Concomitant]
     Dosage: 360 MG, BID
     Dates: start: 20101001
  3. TACROLIMUS [Suspect]
     Indication: RENAL TRANSPLANT
     Dosage: 5 MG, BID
     Route: 048
     Dates: start: 20120109

REACTIONS (1)
  - AGRANULOCYTOSIS [None]
